FAERS Safety Report 7318867-6 (Version None)
Quarter: 2011Q1

REPORT INFORMATION
  Report Type: 
  Country: None (occurrence: None)
  Receive Date: 20110228
  Receipt Date: 20110114
  Transmission Date: 20110831
  Serious: No
  Sender: FDA-Public Use
  Company Number: A0896741A

PATIENT
  Age: 37 Year
  Sex: Female

DRUGS (5)
  1. SUMATRIPTAN SUCCINATE [Suspect]
     Indication: MIGRAINE
     Dosage: 1INJ AS REQUIRED
     Route: 058
     Dates: start: 20100801
  2. BIRTH CONTROL [Concomitant]
  3. UNKNOWN MEDICATION [Concomitant]
     Indication: MIGRAINE PROPHYLAXIS
  4. PROZAC [Concomitant]
  5. SUMATRIPTAN SUCCINATE [Suspect]
     Route: 048
     Dates: start: 20100801

REACTIONS (2)
  - DRUG INEFFECTIVE [None]
  - MIGRAINE [None]
